FAERS Safety Report 20836247 (Version 3)
Quarter: 2022Q2

REPORT INFORMATION
  Report Type: Report from Study
  Country: CA (occurrence: CA)
  Receive Date: 20220516
  Receipt Date: 20220617
  Transmission Date: 20220721
  Serious: No
  Sender: FDA-Public Use
  Company Number: CA-JNJFOC-20220517650

PATIENT
  Age: 44 Year
  Sex: Female

DRUGS (1)
  1. TREMFYA [Suspect]
     Active Substance: GUSELKUMAB
     Indication: Psoriatic arthropathy
     Route: 058
     Dates: start: 20220425, end: 2022

REACTIONS (6)
  - Headache [Unknown]
  - Diarrhoea [Unknown]
  - Stenosis [Unknown]
  - Hepatomegaly [Unknown]
  - Hepatic pain [Unknown]
  - Abnormal faeces [Unknown]
